FAERS Safety Report 4765123-6 (Version None)
Quarter: 2005Q3

REPORT INFORMATION
  Report Type: 
  Country: None (occurrence: None)
  Receive Date: 20050906
  Receipt Date: 20050823
  Transmission Date: 20060218
  Serious: Yes (Hospitalization, Other)
  Sender: FDA-Public Use
  Company Number: USA0508104359

PATIENT
  Age: 59 Year
  Sex: Female

DRUGS (12)
  1. ZYPREXA [Suspect]
     Dosage: 10 MG AT BEDTIME
  2. LEXAPRO [Concomitant]
  3. XANAX [Concomitant]
  4. DULCOLAX [Concomitant]
  5. DEPAKOTE [Concomitant]
  6. COLACE (DOCUSATE SODIUM) [Concomitant]
  7. NAPROSYN [Concomitant]
  8. NEXIUM [Concomitant]
  9. SEROQUEL [Concomitant]
  10. LEVOTHYROXINE [Concomitant]
  11. RAPTIVA [Concomitant]
  12. SENNA [Concomitant]

REACTIONS (1)
  - INTESTINAL OBSTRUCTION [None]
